FAERS Safety Report 10047815 (Version 4)
Quarter: 2015Q2

REPORT INFORMATION
  Report Type: Spontaneous
  Country: US (occurrence: US)
  Receive Date: 20140331
  Receipt Date: 20150626
  Transmission Date: 20150821
  Serious: Yes (Hospitalization)
  Sender: FDA-Public Use
  Company Number: US-UCBSA-115800

PATIENT
  Age: 53 Year
  Sex: Male
  Weight: 118 kg

DRUGS (1)
  1. CIMZIA [Suspect]
     Active Substance: CERTOLIZUMAB PEGOL
     Indication: CROHN^S DISEASE
     Dosage: OH HOLD. LOT NO. 103601 FROM 13-FEB-2014 INJECTION
     Route: 058
     Dates: start: 20090224, end: 201402

REACTIONS (1)
  - Colostomy [Not Recovered/Not Resolved]

NARRATIVE: CASE EVENT DATE: 201403
